FAERS Safety Report 6273979-3 (Version None)
Quarter: 2009Q3

REPORT INFORMATION
  Report Type: 
  Country: None (occurrence: None)
  Receive Date: 20090720
  Receipt Date: 20090710
  Transmission Date: 20100115
  Serious: Yes (Other)
  Sender: FDA-Public Use
  Company Number: CN-ROCHE-643000

PATIENT
  Age: 88 Year
  Sex: Male
  Weight: 65 kg

DRUGS (3)
  1. XELODA [Suspect]
     Indication: COLON CANCER
     Dosage: INDICATION REPORTED AS COLON CANCER WITH LYMPHATIC METASTASES.
     Route: 048
     Dates: start: 20040101, end: 20040101
  2. XELODA [Suspect]
     Dosage: INDICATION REPORTED AS COLON CANCER WITH LIVER METASTASES.
     Route: 048
     Dates: start: 20090601, end: 20090601
  3. XELODA [Suspect]
     Dosage: INDICATION REPORTED AS COLON CANCER WITH LIVER METASTASES.
     Route: 048
     Dates: start: 20090601

REACTIONS (3)
  - CARCINOEMBRYONIC ANTIGEN INCREASED [None]
  - LIVER FUNCTION TEST ABNORMAL [None]
  - METASTASES TO LIVER [None]
